FAERS Safety Report 6619285-6 (Version None)
Quarter: 2010Q1

REPORT INFORMATION
  Report Type: 
  Country: None (occurrence: None)
  Receive Date: 20100303
  Receipt Date: 20100218
  Transmission Date: 20100710
  Serious: Yes (Hospitalization)
  Sender: FDA-Public Use
  Company Number: 513882

PATIENT
  Age: 45 Year
  Sex: Female

DRUGS (4)
  1. IRINOTECAN HYDROCHLORIDE 20MG/ML CONCENTRATE FOR SOLUTION FOR INFUSION [Suspect]
     Indication: COLON CANCER METASTATIC
  2. FLUOROURACIL INJ [Suspect]
     Indication: COLON CANCER METASTATIC
  3. ERBITUX [Suspect]
     Indication: COLON CANCER METASTATIC
  4. (FOLINIC ACID) [Suspect]
     Indication: COLON CANCER METASTATIC

REACTIONS (1)
  - PNEUMONIA [None]
